FAERS Safety Report 10238109 (Version 1)
Quarter: 2014Q2

REPORT INFORMATION
  Report Type: Spontaneous
  Country: US (occurrence: None)
  Receive Date: 20140613
  Receipt Date: 20140613
  Transmission Date: 20141212
  Serious: Yes (Hospitalization)
  Sender: FDA-Public Use
  Company Number: None

PATIENT
  Age: 70 Year
  Sex: Male
  Weight: 78.02 kg

DRUGS (15)
  1. PCI32765, 420MG, PHARMACYCLICS (IBRUTIMIB) [Suspect]
     Indication: CHRONIC LYMPHOCYTIC LEUKAEMIA
     Route: 048
     Dates: start: 20130605
  2. VALACYCLOVIR [Concomitant]
  3. KETOCONAZOLE [Concomitant]
  4. CIPROFLOXACIN [Concomitant]
  5. BLACK CURRANT SEED OIL [Concomitant]
  6. ATORVASTATIN [Concomitant]
  7. AMLODIPINE [Concomitant]
  8. OSU-11133 [Concomitant]
  9. CALCIUM CARBONATE (TUMS) [Concomitant]
  10. CLOPIDOGREL (PLAVIX) [Concomitant]
  11. METOPROLOL-XL (TOPROL XL) [Concomitant]
  12. LISNIOPRIL [Concomitant]
  13. PANTOPRAZOLE [Concomitant]
  14. LORAZEPAM (ATIVAN PO) [Concomitant]
  15. GLUCOSAMINE CHONDROITIN COMPLX PO [Concomitant]

REACTIONS (5)
  - Subdural haematoma [None]
  - Subarachnoid haemorrhage [None]
  - Brain contusion [None]
  - Platelet count decreased [None]
  - Haemoglobin decreased [None]
